FAERS Safety Report 8305424-8 (Version None)
Quarter: 2012Q2

REPORT INFORMATION
  Report Type: 
  Country: None (occurrence: None)
  Receive Date: 20120423
  Receipt Date: 20120418
  Transmission Date: 20120825
  Serious: Yes (Hospitalization, Other)
  Sender: FDA-Public Use
  Company Number: PHHY2012US032123

PATIENT
  Age: 74 Year
  Sex: Male

DRUGS (3)
  1. WARFARIN SODIUM [Suspect]
     Indication: ATRIAL FIBRILLATION
     Dosage: 2.5 MG, DAILY
  2. FENTANYL [Concomitant]
  3. ACETAMINOPHEN [Interacting]
     Indication: BACK PAIN
     Dosage: 500 MG, PRN

REACTIONS (8)
  - INTERNATIONAL NORMALISED RATIO INCREASED [None]
  - BACK PAIN [None]
  - TENDERNESS [None]
  - ARTHRITIS [None]
  - BLOOD PRESSURE DECREASED [None]
  - MUSCLE HAEMORRHAGE [None]
  - HAEMORRHAGE [None]
  - DRUG INTERACTION [None]
